FAERS Safety Report 20868439 (Version 1)
Quarter: 2022Q2

REPORT INFORMATION
  Report Type: Report from Study
  Country: PH (occurrence: PH)
  Receive Date: 20220524
  Receipt Date: 20220524
  Transmission Date: 20220721
  Serious: Yes (Death)
  Sender: FDA-Public Use
  Company Number: PH-NOVARTISPH-NVSC2022PH119321

PATIENT
  Age: 65 Year
  Sex: Male

DRUGS (1)
  1. ENTRESTO [Suspect]
     Active Substance: SACUBITRIL\VALSARTAN
     Indication: Product used for unknown indication
     Dosage: UNK
     Route: 065

REACTIONS (10)
  - Septic shock [Fatal]
  - Pneumonia [Fatal]
  - Cerebrovascular disorder [Fatal]
  - Malignant middle cerebral artery syndrome [Fatal]
  - Acute kidney injury [Fatal]
  - Upper gastrointestinal haemorrhage [Fatal]
  - Gastric disorder [Fatal]
  - Hypertensive heart disease [Fatal]
  - Cardiomegaly [Fatal]
  - Atrial fibrillation [Fatal]
